FAERS Safety Report 13795060 (Version 1)
Quarter: 2017Q3

REPORT INFORMATION
  Report Type: Spontaneous
  Country: GB (occurrence: GB)
  Receive Date: 20170726
  Receipt Date: 20170726
  Transmission Date: 20171127
  Serious: Yes (Hospitalization)
  Sender: FDA-Public Use
  Company Number: GB-TEVA-788659ACC

PATIENT
  Age: 72 Year
  Sex: Male

DRUGS (16)
  1. PARACETAMOL [Concomitant]
     Active Substance: ACETAMINOPHEN
  2. QUININE SULFATE. [Concomitant]
     Active Substance: QUININE SULFATE
  3. ALOGLIPTIN. [Concomitant]
     Active Substance: ALOGLIPTIN
  4. CARBOCYSTEINE [Suspect]
     Active Substance: CARBOCYSTEINE
     Dosage: 1500 MILLIGRAM DAILY;
     Route: 048
     Dates: end: 20170604
  5. CODEINE [Concomitant]
     Active Substance: CODEINE
  6. OMEPRAZOLE. [Concomitant]
     Active Substance: OMEPRAZOLE
  7. CLOPIDOGREL [Suspect]
     Active Substance: CLOPIDOGREL BISULFATE
     Indication: CEREBROVASCULAR ACCIDENT
     Dosage: 75 MILLIGRAM DAILY;
     Route: 048
     Dates: end: 20170629
  8. CALCIUM RESONIUM [Concomitant]
  9. FUSIDIC ACID [Concomitant]
     Active Substance: FUSIDIC ACID
  10. DIGOXIN. [Concomitant]
     Active Substance: DIGOXIN
  11. COTRIMOXAZOLE [Concomitant]
     Active Substance: SULFAMETHOXAZOLE\TRIMETHOPRIM
  12. ENOXAPARIN SODIUM. [Concomitant]
     Active Substance: ENOXAPARIN SODIUM
  13. RAMIPRIL. [Concomitant]
     Active Substance: RAMIPRIL
  14. RANITIDINE. [Concomitant]
     Active Substance: RANITIDINE
  15. METFORMIN [Concomitant]
     Active Substance: METFORMIN HYDROCHLORIDE
  16. DOXYCYCLINE HYDROCHLORIDE [Concomitant]
     Active Substance: DOXYCYCLINE HYDROCHLORIDE

REACTIONS (4)
  - Melaena [Recovering/Resolving]
  - Haematemesis [Recovering/Resolving]
  - Duodenal ulcer haemorrhage [Recovering/Resolving]
  - Duodenitis [Recovering/Resolving]

NARRATIVE: CASE EVENT DATE: 20170629
